FAERS Safety Report 14587064 (Version 1)
Quarter: 2018Q1

REPORT INFORMATION
  Report Type: Spontaneous
  Country: US (occurrence: US)
  Receive Date: 20180301
  Receipt Date: 20180301
  Transmission Date: 20180509
  Serious: No
  Sender: FDA-Public Use
  Company Number: US-TEVA-2018-US-856186

PATIENT
  Sex: Female

DRUGS (2)
  1. CLONIDINE. [Suspect]
     Active Substance: CLONIDINE
     Route: 062
     Dates: start: 201711
  2. CLONIDINE. [Suspect]
     Active Substance: CLONIDINE
     Route: 062

REACTIONS (4)
  - Somnolence [Unknown]
  - Product physical issue [Unknown]
  - Constipation [Unknown]
  - Application site irritation [Unknown]

NARRATIVE: CASE EVENT DATE: 201711
